FAERS Safety Report 5747649-1 (Version None)
Quarter: 2008Q2

REPORT INFORMATION
  Report Type: 
  Country: None (occurrence: None)
  Receive Date: 20080523
  Receipt Date: 20080513
  Transmission Date: 20081010
  Serious: Yes (Death)
  Sender: FDA-Public Use
  Company Number: IT-PURDUE-GBR_2008_0004030

PATIENT
  Age: 84 Year
  Sex: Female

DRUGS (3)
  1. OXYCONTIN [Suspect]
     Indication: PAIN
     Dosage: 5 MG, TID
     Route: 048
     Dates: start: 20080427
  2. OXYCONTIN [Suspect]
     Dosage: 5 MG, BID
     Route: 048
     Dates: start: 20080424
  3. ANTIHYPERTENSIVES [Concomitant]

REACTIONS (1)
  - DEATH [None]
